FAERS Safety Report 18957774 (Version 1)
Quarter: 2021Q1

REPORT INFORMATION
  Report Type: Spontaneous
  Country: US (occurrence: US)
  Receive Date: 20210302
  Receipt Date: 20210302
  Transmission Date: 20210420
  Serious: No
  Sender: FDA-Public Use
  Company Number: US-GLAXOSMITHKLINE-US2021053231

PATIENT
  Sex: Male

DRUGS (1)
  1. ANORO [Suspect]
     Active Substance: UMECLIDINIUM BROMIDE\VILANTEROL TRIFENATATE
     Indication: COVID-19 PNEUMONIA
     Dosage: UNK
     Dates: start: 20210223

REACTIONS (3)
  - Wrong technique in device usage process [Unknown]
  - Product label confusion [Unknown]
  - Off label use [Unknown]
